FAERS Safety Report 19178385 (Version 2)
Quarter: 2021Q2

REPORT INFORMATION
  Report Type: Spontaneous
  Country: US (occurrence: US)
  Receive Date: 20210426
  Receipt Date: 20210628
  Transmission Date: 20210717
  Serious: Yes (Life-Threatening, Hospitalization)
  Sender: FDA-Public Use
  Company Number: US-TEVA-2021-US-1904658

PATIENT
  Age: 65 Year
  Sex: Female

DRUGS (6)
  1. BIVALIRUDIN. [Concomitant]
     Active Substance: BIVALIRUDIN
     Indication: ANTICOAGULANT THERAPY
     Dosage: AT THERAPEUTIC ACTIVATED PARTIAL THROMBOPLASTIN TIME, THE DOSE RANGE OF BIVALIRUDIN WAS BETWEEN 0
     Route: 041
  2. BIVALIRUDIN. [Concomitant]
     Active Substance: BIVALIRUDIN
     Dosage: 6 MG/KG DAILY; WITH THE FIRST PORTION OF HER ECMO COURSE
     Route: 041
  3. BIVALIRUDIN. [Concomitant]
     Active Substance: BIVALIRUDIN
     Dosage: 3.84 MG/KG DAILY; ANOTHER PORTION AFTER DIAGNOSIS OF ENTEROCOCCUS BACTERAEMIA
     Route: 041
  4. NOREPINEPHRINE. [Suspect]
     Active Substance: NOREPINEPHRINE
     Indication: HAEMODYNAMIC INSTABILITY
     Dosage: 0.05 UG/KG PER MINT
     Route: 065
  5. HEPARIN [Concomitant]
     Active Substance: HEPARIN SODIUM
     Indication: ANTICOAGULANT THERAPY
     Dosage: 100 U/KG; BOLUS
     Route: 065
  6. HEPARIN [Concomitant]
     Active Substance: HEPARIN SODIUM
     Dosage: 5000U; 3 TIMES PER DAY
     Route: 058

REACTIONS (1)
  - Drug ineffective [Unknown]
